FAERS Safety Report 8397125-5 (Version None)
Quarter: 2012Q2

REPORT INFORMATION
  Report Type: 
  Country: None (occurrence: None)
  Receive Date: 20120530
  Receipt Date: 20120523
  Transmission Date: 20120825
  Serious: Yes (Hospitalization)
  Sender: FDA-Public Use
  Company Number: DE-ROCHE-1068170

PATIENT
  Sex: Female

DRUGS (17)
  1. NEBIVOLOL [Concomitant]
     Dates: start: 20120412
  2. TRIMETHOPRIM + SULFAMETHOXAZOLE [Concomitant]
     Dates: start: 20120412
  3. ENOXAPARIN NATRIUM [Concomitant]
     Indication: PROPHYLAXIS
     Dates: start: 20120412
  4. LEVOTHYROXINE SODIUM [Concomitant]
     Dates: start: 20120412
  5. ACYCLOVIR [Concomitant]
     Dates: start: 20120412
  6. MABTHERA [Suspect]
     Indication: B-CELL LYMPHOMA
     Route: 042
     Dates: start: 20120425
  7. SIMVASTATIN [Concomitant]
     Dates: start: 20120412
  8. TORSEMIDE [Concomitant]
     Dates: start: 20120412
  9. TIOTROPIUM BROMIDE [Concomitant]
     Dates: start: 20120412
  10. DOXORUBICIN HCL [Suspect]
     Indication: B-CELL LYMPHOMA
     Route: 042
     Dates: start: 20120426
  11. NEULASTA [Suspect]
     Indication: B-CELL LYMPHOMA
     Route: 058
     Dates: start: 20120429
  12. CYCLOPHOSPHAMIDE [Suspect]
     Indication: B-CELL LYMPHOMA
     Route: 042
     Dates: start: 20120426
  13. RAMIPRIL [Concomitant]
     Dates: start: 20120412
  14. PANTOPRAZOLE [Concomitant]
     Dates: start: 20120412
  15. PREDNISOLONE [Suspect]
     Indication: B-CELL LYMPHOMA
     Dates: start: 20120426, end: 20120430
  16. ASPIRIN [Concomitant]
     Dates: start: 20120412
  17. VINCRISTINE [Suspect]
     Indication: B-CELL LYMPHOMA
     Route: 042
     Dates: start: 20120426

REACTIONS (2)
  - THROMBOCYTOPENIA [None]
  - SYNCOPE [None]
